FAERS Safety Report 13423867 (Version 2)
Quarter: 2020Q3

REPORT INFORMATION
  Report Type: Report from Study
  Country: US (occurrence: US)
  Receive Date: 20170410
  Receipt Date: 20200804
  Transmission Date: 20201102
  Serious: Yes (Hospitalization, Other)
  Sender: FDA-Public Use
  Company Number: US-009507513-1704USA002255

PATIENT
  Age: 78 Year
  Sex: Female

DRUGS (1)
  1. JANUVIA [Suspect]
     Active Substance: SITAGLIPTIN PHOSPHATE
     Dosage: UNK
     Route: 048

REACTIONS (9)
  - Tooth fracture [Not Recovered/Not Resolved]
  - Mastication disorder [Not Recovered/Not Resolved]
  - Product dose omission issue [Unknown]
  - Adverse event [Unknown]
  - Corneal disorder [Unknown]
  - Herpes zoster [Unknown]
  - Gastric ulcer [Not Recovered/Not Resolved]
  - Toothache [Not Recovered/Not Resolved]
  - Foot fracture [Unknown]

NARRATIVE: CASE EVENT DATE: 2020
